FAERS Safety Report 24239058 (Version 1)
Quarter: 2024Q3

REPORT INFORMATION
  Report Type: Spontaneous
  Country: US (occurrence: US)
  Receive Date: 20240822
  Receipt Date: 20240822
  Transmission Date: 20241017
  Serious: No
  Sender: AVADEL CNS PHARMA
  Company Number: US-AVADEL CNS PHARMACEUTICALS, LLC-2024AVA00375

PATIENT
  Age: 34 Year
  Sex: Female

DRUGS (10)
  1. LUMRYZ [Suspect]
     Active Substance: SODIUM OXYBATE
     Indication: Narcolepsy
     Dosage: 9 G, ONCE NIGHTY AT BEDTIME
     Route: 048
     Dates: start: 202402, end: 2024
  2. LUMRYZ [Suspect]
     Active Substance: SODIUM OXYBATE
     Indication: Cataplexy
     Dosage: 9 G, ONCE NIGHTY AT BEDTIME
     Route: 048
     Dates: start: 2024
  3. AMPHETAMINE SULFATE [Concomitant]
     Active Substance: AMPHETAMINE SULFATE
  4. ESCITALOPRAM OXALATE [Concomitant]
     Active Substance: ESCITALOPRAM OXALATE
  5. MONTELUKAST SODIUM [Concomitant]
     Active Substance: MONTELUKAST\MONTELUKAST SODIUM
  6. ARMODAFINIL [Concomitant]
     Active Substance: ARMODAFINIL
  7. ADZENYS XR-ODT [Concomitant]
     Active Substance: AMPHETAMINE
  8. LEXAPRO [Concomitant]
     Active Substance: ESCITALOPRAM OXALATE
  9. ETHYNODIOL DIACETATE AND ETHINYL ESTRADIOL [Concomitant]
     Active Substance: ETHINYL ESTRADIOL\ETHYNODIOL DIACETATE
  10. VITAMIN D2 [Concomitant]
     Active Substance: ERGOCALCIFEROL

REACTIONS (1)
  - Gastric infection [Unknown]

NARRATIVE: CASE EVENT DATE: 20240601
